FAERS Safety Report 16545924 (Version 1)
Quarter: 2019Q3

REPORT INFORMATION
  Report Type: Spontaneous
  Country: GB (occurrence: GB)
  Receive Date: 20190709
  Receipt Date: 20190709
  Transmission Date: 20191004
  Serious: Yes (Death, Other)
  Sender: FDA-Public Use
  Company Number: GB-JAZZ-2019-GB-009045

PATIENT
  Sex: Male

DRUGS (1)
  1. VYXEOS [Suspect]
     Active Substance: CYTARABINE\DAUNORUBICIN
     Indication: CHRONIC MYELOMONOCYTIC LEUKAEMIA
     Dosage: UNK

REACTIONS (2)
  - Death [Fatal]
  - Therapy non-responder [Unknown]
